FAERS Safety Report 7807303-9 (Version None)
Quarter: 2011Q4

REPORT INFORMATION
  Report Type: 
  Country: None (occurrence: None)
  Receive Date: 20111011
  Receipt Date: 20111010
  Transmission Date: 20120403
  Serious: Yes (Hospitalization)
  Sender: FDA-Public Use
  Company Number: US-BRISTOL-MYERS SQUIBB COMPANY-15466154

PATIENT
  Age: 61 Year
  Sex: Male
  Weight: 72 kg

DRUGS (12)
  1. ERBITUX [Suspect]
     Indication: NON-SMALL CELL LUNG CANCER
     Dosage: INTERRUPTED ON 14DEC10(42D) RECENT INF(6TH):14DEC10 28DEC10 WITHDRAWN FROM STUDY,43DAYS
     Route: 042
     Dates: start: 20101102, end: 20101221
  2. PULMICORT [Concomitant]
     Dosage: 0.5MG/2ML
     Route: 055
     Dates: start: 20101214
  3. ALIMTA [Suspect]
     Indication: NON-SMALL CELL LUNG CANCER
     Dosage: RECENT INF(3TH):14DEC10 28DEC10 WITHDRAWN FROM STUDY,THERAPY DURATION 43 DAYS
     Route: 042
     Dates: start: 20101102, end: 20101228
  4. PLAVIX [Concomitant]
     Route: 048
     Dates: start: 20100701
  5. TOPROL-XL [Concomitant]
     Indication: HYPERTENSION
     Route: 048
  6. LOVENOX [Concomitant]
     Indication: PULMONARY EMBOLISM
     Route: 058
     Dates: start: 20101001
  7. OXYCODONE HCL [Concomitant]
     Indication: PAIN
     Dosage: 1-2 EVERY 4 HOURS.
     Route: 065
  8. GLUCOPHAGE [Concomitant]
     Indication: DIABETES MELLITUS
     Route: 048
     Dates: start: 20100101
  9. CLONIDINE [Concomitant]
     Indication: HYPERTENSION
     Route: 065
  10. ARIXTRA [Concomitant]
     Indication: PULMONARY EMBOLISM
     Route: 065
  11. CARBOPLATIN [Suspect]
     Indication: NON-SMALL CELL LUNG CANCER
     Dosage: RECENT INF(3RD):14DEC10 28DEC10 WITHDRAWN FROM STUDY,THERAPY DURA 43DAYS
     Route: 042
     Dates: start: 20101102, end: 20101228
  12. OXYCONTIN [Concomitant]
     Indication: PAIN
     Route: 048

REACTIONS (1)
  - SUBDURAL HAEMATOMA [None]
